FAERS Safety Report 10209543 (Version 3)
Quarter: 2014Q2

REPORT INFORMATION
  Report Type: Spontaneous
  Country: HU (occurrence: HU)
  Receive Date: 20140602
  Receipt Date: 20140623
  Transmission Date: 20141212
  Serious: Yes (Other)
  Sender: FDA-Public Use
  Company Number: HU-AMGEN-HUNSP2014015958

PATIENT
  Sex: Male

DRUGS (2)
  1. ENBREL [Suspect]
     Indication: PSORIATIC ARTHROPATHY
     Dosage: 50 MG, QWK
     Route: 058
  2. ENBREL [Suspect]
     Dosage: 50 MG, WEEKLY
     Route: 058
     Dates: start: 2012

REACTIONS (7)
  - Skin disorder [Recovered/Resolved]
  - Thrombosis [Unknown]
  - Cataract [Unknown]
  - Liver function test abnormal [Recovered/Resolved]
  - Condition aggravated [Recovered/Resolved]
  - Gingival inflammation [Recovered/Resolved]
  - Tooth abscess [Recovered/Resolved]
